FAERS Safety Report 8245289-6 (Version None)
Quarter: 2012Q1

REPORT INFORMATION
  Report Type: 
  Country: None (occurrence: None)
  Receive Date: 20120329
  Receipt Date: 20120321
  Transmission Date: 20120608
  Serious: Yes (Other)
  Sender: FDA-Public Use
  Company Number: SE-ABBOTT-12P-150-0907570-00

PATIENT
  Sex: Female

DRUGS (2)
  1. HUMIRA [Suspect]
     Indication: PSORIASIS
     Dates: start: 20080819, end: 20100426
  2. HUMIRA [Suspect]
     Dates: start: 20110426, end: 20120125

REACTIONS (2)
  - BREAST CANCER [None]
  - NEURALGIA [None]
